FAERS Safety Report 9941323 (Version 1)
Quarter: 2014Q1

REPORT INFORMATION
  Report Type: Report from Study
  Country: US (occurrence: US)
  Receive Date: 20140303
  Receipt Date: 20140303
  Transmission Date: 20141002
  Serious: No
  Sender: FDA-Public Use
  Company Number: US-ABBVIE-13P-163-1042827-00

PATIENT
  Age: 33 Year
  Sex: Male

DRUGS (1)
  1. HUMIRA [Suspect]
     Indication: RHEUMATOID ARTHRITIS
     Route: 058
     Dates: start: 20130103, end: 20130117

REACTIONS (3)
  - Pyrexia [Recovered/Resolved]
  - Gastrointestinal bacterial infection [Recovered/Resolved]
  - Night sweats [Recovered/Resolved]
